FAERS Safety Report 24917771 (Version 1)
Quarter: 2025Q1

REPORT INFORMATION
  Report Type: Spontaneous
  Country: US (occurrence: US)
  Receive Date: 20250203
  Receipt Date: 20250203
  Transmission Date: 20250408
  Serious: No
  Sender: SANOFI AVENTIS
  Company Number: US-SANOFI-02394983

PATIENT
  Age: 82 Year
  Sex: Female

DRUGS (1)
  1. MULTAQ [Suspect]
     Active Substance: DRONEDARONE
     Indication: Supraventricular tachycardia

REACTIONS (6)
  - Fall [Unknown]
  - Rib fracture [Unknown]
  - Blood sodium decreased [Unknown]
  - Asthenia [Unknown]
  - Off label use [Not Recovered/Not Resolved]
  - Nausea [Unknown]
